FAERS Safety Report 8431736-3 (Version None)
Quarter: 2012Q2

REPORT INFORMATION
  Report Type: 
  Country: None (occurrence: None)
  Receive Date: 20120613
  Receipt Date: 20120604
  Transmission Date: 20120825
  Serious: Yes (Hospitalization)
  Sender: FDA-Public Use
  Company Number: US-BAYER-2012-056978

PATIENT
  Age: 30 Year
  Sex: Female

DRUGS (17)
  1. YAZ [Suspect]
  2. CYMBALTA [Concomitant]
     Indication: DEPRESSION
     Dosage: 60 MG, DAILY
     Dates: start: 20110623
  3. BROMPHENIRAMINE MALEATE + PSEUDOEPHEDRINE HCL [Concomitant]
     Dosage: UNK
     Dates: start: 20110310
  4. DICLOFENAC SODIUM [Concomitant]
     Dosage: 75 MG, UNK
     Dates: start: 20110421
  5. KETOROLAC TROMETHAMINE [Concomitant]
     Dosage: 10 MG, UNK
     Dates: start: 20110509
  6. NORFLEX [Concomitant]
     Indication: PAIN
     Dosage: 100 MG, UNK
     Route: 048
     Dates: start: 20110630, end: 20120323
  7. DROSPIRENONE AND ETHINYL ESTRADIOL [Suspect]
  8. ORPHENADRINE CITRATE [Concomitant]
     Dosage: 100 MG, UNK
     Dates: start: 20110509, end: 20110630
  9. BETAMETHASONE [Concomitant]
     Dosage: UNK
     Dates: start: 20110705
  10. CHANTIX [Concomitant]
  11. CYCLOBENZAPRINE [Concomitant]
     Dosage: 10 MG, UNK
     Dates: start: 20110417
  12. NORCO [Concomitant]
     Indication: PAIN
     Dosage: 7.5-500 MG, BID
     Route: 048
     Dates: start: 20110630, end: 20110830
  13. MELOXICAM [Concomitant]
     Dosage: 15 MG, UNK
     Dates: start: 20110406
  14. HYDROCODONE BITARTRATE + ACETAMINOPHEN [Concomitant]
     Dosage: UNK
     Dates: start: 20110509, end: 20110630
  15. TORADOL [Concomitant]
     Indication: PAIN
     Dosage: 60 MG, UNK
     Route: 030
     Dates: start: 20110630
  16. VOLTAREN [Concomitant]
  17. ERYTHROMYCIN [Concomitant]
     Dosage: 500 MG, UNK
     Dates: start: 20110310

REACTIONS (1)
  - PULMONARY EMBOLISM [None]
